FAERS Safety Report 4356292-0 (Version None)
Quarter: 2004Q2

REPORT INFORMATION
  Report Type: 
  Country: None (occurrence: None)
  Receive Date: 20040510
  Receipt Date: 20040510
  Transmission Date: 20050107
  Serious: Yes (Other)
  Sender: FDA-Public Use
  Company Number: None

PATIENT
  Age: 46 Year
  Sex: Male
  Weight: 88.4514 kg

DRUGS (1)
  1. PEG-INTRON [Suspect]
     Indication: HEPATITIS C
     Dosage: 150 MCG ONCE WEEKLY SUBCUTANEOUS
     Route: 058
     Dates: start: 20040306, end: 20041231

REACTIONS (2)
  - DEVICE FAILURE [None]
  - MEDICATION ERROR [None]
